FAERS Safety Report 6316394-6 (Version None)
Quarter: 2009Q3

REPORT INFORMATION
  Report Type: 
  Country: None (occurrence: None)
  Receive Date: 20090820
  Receipt Date: 20090813
  Transmission Date: 20100115
  Serious: Yes (Hospitalization)
  Sender: FDA-Public Use
  Company Number: B0588529A

PATIENT
  Sex: Male

DRUGS (7)
  1. AMOXICILLIN TRIHYDRATE [Suspect]
     Dosage: 1UNIT PER DAY
     Route: 048
     Dates: start: 20090505, end: 20090516
  2. SINGULAIR [Concomitant]
     Route: 065
     Dates: start: 20090505, end: 20090515
  3. CORDARONE [Concomitant]
     Route: 065
  4. INSULINE [Concomitant]
     Route: 065
  5. CARDENSIEL [Concomitant]
     Route: 065
  6. TAHOR [Concomitant]
     Route: 065
  7. PREVISCAN [Concomitant]
     Route: 065

REACTIONS (7)
  - CHEST DISCOMFORT [None]
  - DERMATITIS EXFOLIATIVE [None]
  - PAINFUL RESPIRATION [None]
  - PRURITUS [None]
  - RASH [None]
  - SKIN EXFOLIATION [None]
  - TOXIC SKIN ERUPTION [None]
